FAERS Safety Report 9668427 (Version 1)
Quarter: 2013Q4

REPORT INFORMATION
  Report Type: Spontaneous
  Country: US (occurrence: US)
  Receive Date: 20131105
  Receipt Date: 20131105
  Transmission Date: 20140711
  Serious: Yes (Other)
  Sender: FDA-Public Use
  Company Number: US-PFIZER INC-2013307611

PATIENT
  Age: 90 Year
  Sex: Male
  Weight: 72.56 kg

DRUGS (2)
  1. ROBITUSSIN COUGH AND CHEST CONGESTION DM MAX [Suspect]
     Indication: NASOPHARYNGITIS
     Dosage: TWO TABLESPOON, AS NEEDED
     Dates: start: 2012
  2. ROBITUSSIN COUGH AND CHEST CONGESTION DM MAX [Suspect]
     Indication: COUGH

REACTIONS (2)
  - Neck injury [Unknown]
  - Drug ineffective [Unknown]
